FAERS Safety Report 8210107-9 (Version None)
Quarter: 2012Q1

REPORT INFORMATION
  Report Type: 
  Country: None (occurrence: None)
  Receive Date: 20120314
  Receipt Date: 20110610
  Transmission Date: 20120608
  Serious: No
  Sender: FDA-Public Use
  Company Number: US-ASTRAZENECA-2011SE35680

PATIENT
  Sex: Female

DRUGS (5)
  1. BENICAR [Concomitant]
  2. LEXAPRO [Concomitant]
  3. SYNTHROID [Concomitant]
  4. TOPROL-XL [Suspect]
     Route: 048
  5. ASPIRIN [Concomitant]

REACTIONS (1)
  - CONTUSION [None]
